FAERS Safety Report 7748760-6 (Version None)
Quarter: 2011Q3

REPORT INFORMATION
  Report Type: 
  Country: None (occurrence: None)
  Receive Date: 20110913
  Receipt Date: 20110913
  Transmission Date: 20111222
  Serious: Yes (Life-Threatening, Hospitalization)
  Sender: FDA-Public Use
  Company Number: None

PATIENT
  Age: 63 Year
  Sex: Female
  Weight: 63.1 kg

DRUGS (2)
  1. METHYLENE BLUE [Suspect]
     Dosage: ONCE IV
     Route: 042
  2. PROZAC [Suspect]
     Dosage: 10 MG DAILY PO
     Route: 048

REACTIONS (6)
  - HYPOTONIA [None]
  - AGITATION [None]
  - DYSTONIA [None]
  - EYE MOVEMENT DISORDER [None]
  - HYPERTONIA [None]
  - SEROTONIN SYNDROME [None]
